FAERS Safety Report 5295804-X (Version None)
Quarter: 2007Q2

REPORT INFORMATION
  Report Type: 
  Country: None (occurrence: None)
  Receive Date: 20070413
  Receipt Date: 20070403
  Transmission Date: 20071010
  Serious: Yes (Death, Disabling, Other)
  Sender: FDA-Public Use
  Company Number: JP-BRISTOL-MYERS SQUIBB COMPANY-13625744

PATIENT
  Age: 67 Year
  Sex: Female

DRUGS (9)
  1. PARAPLATIN [Suspect]
     Indication: UTERINE CANCER
     Route: 041
     Dates: start: 20061225, end: 20061225
  2. TAXOL [Suspect]
     Indication: UTERINE CANCER
     Route: 041
     Dates: start: 20070101, end: 20070101
  3. DECADRON [Suspect]
  4. NEUTROGIN [Concomitant]
     Route: 058
     Dates: start: 20070102, end: 20070103
  5. MEROPEN [Concomitant]
     Route: 042
     Dates: start: 20070102, end: 20070108
  6. GASTER [Concomitant]
     Route: 042
     Dates: start: 20070103, end: 20070103
  7. DAI-KENCHU-TO [Concomitant]
     Route: 048
     Dates: start: 20061012, end: 20070108
  8. MAGLAX [Concomitant]
     Route: 048
     Dates: start: 20061112, end: 20070108
  9. BIOFERMIN [Concomitant]
     Route: 048
     Dates: start: 20061105, end: 20070108

REACTIONS (5)
  - GASTROINTESTINAL HAEMORRHAGE [None]
  - HEPATIC FUNCTION ABNORMAL [None]
  - LEUKOPENIA [None]
  - RENAL IMPAIRMENT [None]
  - THROMBOCYTOPENIA [None]
